FAERS Safety Report 9236198 (Version 1)
Quarter: 2013Q2

REPORT INFORMATION
  Report Type: Spontaneous
  Country: US (occurrence: None)
  Receive Date: 20130416
  Receipt Date: 20130416
  Transmission Date: 20140414
  Serious: No
  Sender: FDA-Public Use
  Company Number: None

PATIENT
  Age: 70 Year
  Sex: Female
  Weight: 65.77 kg

DRUGS (1)
  1. CLONAZEPAM [Suspect]
     Dates: start: 201211, end: 201304

REACTIONS (1)
  - Urinary incontinence [None]
